FAERS Safety Report 9484916 (Version 1)
Quarter: 2013Q3

REPORT INFORMATION
  Report Type: Spontaneous
  Country: US (occurrence: US)
  Receive Date: 20130828
  Receipt Date: 20130828
  Transmission Date: 20140515
  Serious: No
  Sender: FDA-Public Use
  Company Number: US-ABBOTT-13P-163-1124678-00

PATIENT
  Age: 60 Year
  Sex: Male
  Weight: 86.26 kg

DRUGS (3)
  1. ANDROGEL [Suspect]
     Indication: BLOOD TESTOSTERONE DECREASED
     Dosage: TWO PUMPS DAILY
     Dates: start: 201305, end: 20130715
  2. SPIRONOLACTONE [Concomitant]
     Indication: HYPERTENSION
  3. TRICOR [Concomitant]
     Indication: BLOOD TRIGLYCERIDES INCREASED

REACTIONS (3)
  - Testicular pain [Recovering/Resolving]
  - Groin pain [Recovering/Resolving]
  - Nipple pain [Recovering/Resolving]
